FAERS Safety Report 20580756 (Version 1)
Quarter: 2022Q1

REPORT INFORMATION
  Report Type: Spontaneous
  Country: US (occurrence: US)
  Receive Date: 20220311
  Receipt Date: 20220311
  Transmission Date: 20220423
  Serious: No
  Sender: FDA-Public Use
  Company Number: US-GLAXOSMITHKLINE-US2022044599

PATIENT
  Age: 47 Year
  Sex: Female

DRUGS (1)
  1. TRELEGY ELLIPTA [Suspect]
     Active Substance: FLUTICASONE FUROATE\UMECLIDINIUM BROMIDE\VILANTEROL TRIFENATATE
     Indication: Asthma
     Dosage: UNK (200/62.5/25MCG INH 30)
     Dates: start: 20201102

REACTIONS (1)
  - Wrist surgery [Not Recovered/Not Resolved]

NARRATIVE: CASE EVENT DATE: 20220209
